FAERS Safety Report 7319107-4 (Version None)
Quarter: 2011Q1

REPORT INFORMATION
  Report Type: 
  Country: None (occurrence: None)
  Receive Date: 20110214
  Receipt Date: 20110203
  Transmission Date: 20110831
  Serious: Yes (Other)
  Sender: FDA-Public Use
  Company Number: 2011SP005630

PATIENT
  Age: 46 Year
  Sex: Female
  Weight: 72 kg

DRUGS (3)
  1. QUETIAPINE [Concomitant]
  2. VALPROIC ACID [Concomitant]
  3. CERAZETTE (DESOGESTREL /00754001/) [Suspect]
     Indication: ENDOMETRIOSIS
     Dosage: PO
     Route: 048
     Dates: start: 20110101

REACTIONS (4)
  - FLUID RETENTION [None]
  - FACE OEDEMA [None]
  - SWELLING [None]
  - WEIGHT INCREASED [None]
